FAERS Safety Report 4639919-5 (Version None)
Quarter: 2005Q2

REPORT INFORMATION
  Report Type: 
  Country: None (occurrence: None)
  Receive Date: 20050418
  Receipt Date: 20050404
  Transmission Date: 20051028
  Serious: Yes (Disabling)
  Sender: FDA-Public Use
  Company Number: 2005054982

PATIENT
  Age: 14 Year
  Weight: 40 kg

DRUGS (2)
  1. LUSTRAL                           (SERTRALINE) [Suspect]
     Indication: OBSESSIVE-COMPULSIVE DISORDER
     Dosage: (150 MG), ORAL
     Route: 048
     Dates: start: 20050215, end: 20050310
  2. ACETAMINOPHEN [Concomitant]

REACTIONS (2)
  - CONDITION AGGRAVATED [None]
  - TIC [None]
